FAERS Safety Report 22868036 (Version 4)
Quarter: 2023Q4

REPORT INFORMATION
  Report Type: Report from Study
  Country: CA (occurrence: CA)
  Receive Date: 20230825
  Receipt Date: 20231204
  Transmission Date: 20240110
  Serious: Yes (Death, Life-Threatening)
  Sender: FDA-Public Use
  Company Number: CA-PFIZER INC-202300122177

PATIENT
  Age: 66 Year
  Sex: Male
  Weight: 85.4 kg

DRUGS (4)
  1. ELRANATAMAB [Suspect]
     Active Substance: ELRANATAMAB
     Dosage: 12 MG, CYCLIC (C1D1)
     Route: 058
     Dates: start: 20230213, end: 20230213
  2. ELRANATAMAB [Suspect]
     Active Substance: ELRANATAMAB
     Dosage: 32 MG, CYCLIC (C1D4)
     Route: 058
     Dates: start: 20230216, end: 20230216
  3. ELRANATAMAB [Suspect]
     Active Substance: ELRANATAMAB
     Dosage: 72 MG, CYCLIC (C1D8)
     Route: 058
     Dates: start: 20230221, end: 20230221
  4. ELRANATAMAB [Suspect]
     Active Substance: ELRANATAMAB
     Dosage: 76 MG, CYCLIC (C1D22)
     Route: 058
     Dates: start: 20230307, end: 20230307

REACTIONS (1)
  - Pneumonia aspiration [Fatal]

NARRATIVE: CASE EVENT DATE: 20230222
